FAERS Safety Report 9028956 (Version 1)
Quarter: 2013Q1

REPORT INFORMATION
  Report Type: Spontaneous
  Country: US (occurrence: US)
  Receive Date: 20130124
  Receipt Date: 20130124
  Transmission Date: 20140127
  Serious: Yes (Other)
  Sender: FDA-Public Use
  Company Number: US-BAYER-2013-005896

PATIENT
  Age: 25 Year
  Sex: Female
  Weight: 77.1 kg

DRUGS (3)
  1. ALKA-SELTZER PLUS DAY,ALKA-SELTZER PLUS NIGHT [Suspect]
     Indication: NASOPHARYNGITIS
     Dosage: 2 DF, QD
     Route: 048
     Dates: start: 201301, end: 201301
  2. VITAMIN C [Concomitant]
  3. CONTRACEPTIVES NOS [Concomitant]

REACTIONS (8)
  - Somnolence [Recovered/Resolved]
  - Sleep disorder [Recovered/Resolved]
  - Initial insomnia [Recovered/Resolved]
  - Somnolence [Recovered/Resolved]
  - Poor quality drug administered [None]
  - Somnolence [Recovered/Resolved]
  - Lethargy [Recovered/Resolved]
  - Somnolence [Recovered/Resolved]
